FAERS Safety Report 12925281 (Version 1)
Quarter: 2016Q4

REPORT INFORMATION
  Report Type: Spontaneous
  Country: AU (occurrence: AU)
  Receive Date: 20161109
  Receipt Date: 20161109
  Transmission Date: 20170207
  Serious: Yes (Other)
  Sender: FDA-Public Use
  Company Number: AU-PFIZER INC-2016512821

PATIENT
  Age: 45 Year
  Sex: Female

DRUGS (4)
  1. CYTARABINE. [Suspect]
     Active Substance: CYTARABINE
     Indication: ACUTE MYELOID LEUKAEMIA
     Dosage: 100 MG/M2, DAILY
     Route: 058
  2. DAUNORUBICIN [Concomitant]
     Active Substance: DAUNORUBICIN
     Dosage: UNK
  3. PREDNISONE. [Concomitant]
     Active Substance: PREDNISONE
     Indication: PROPHYLAXIS
     Dosage: 10 MG, DAILY
  4. CYTARABINE. [Suspect]
     Active Substance: CYTARABINE
     Dosage: 20 MG/M2, DAILY
     Route: 058

REACTIONS (2)
  - Cytarabine syndrome [Unknown]
  - Type III immune complex mediated reaction [Unknown]
